FAERS Safety Report 9008641 (Version 3)
Quarter: 2013Q1

REPORT INFORMATION
  Report Type: Report from Study
  Country: ES (occurrence: ES)
  Receive Date: 20130111
  Receipt Date: 20130211
  Transmission Date: 20140127
  Serious: Yes (Hospitalization)
  Sender: FDA-Public Use
  Company Number: ES-BRISTOL-MYERS SQUIBB COMPANY-17270513

PATIENT
  Age: 53 Year
  Sex: Male

DRUGS (4)
  1. IPILIMUMAB [Suspect]
     Indication: METASTATIC MALIGNANT MELANOMA
     Dosage: INTER ON 12DEC12.LAST DOSE 1115MG
     Route: 042
     Dates: start: 20121031
  2. FENTANYL [Concomitant]
     Dates: start: 20121227
  3. MORPHINE SULFATE [Concomitant]
     Dates: start: 20121227
  4. METOCLOPRAMIDE [Concomitant]
     Dates: start: 20121227

REACTIONS (1)
  - Gastroenteritis [Recovered/Resolved]
